FAERS Safety Report 6369739-5 (Version None)
Quarter: 2009Q3

REPORT INFORMATION
  Report Type: 
  Country: None (occurrence: None)
  Receive Date: 20090923
  Receipt Date: 20090914
  Transmission Date: 20100115
  Serious: Yes (Other)
  Sender: FDA-Public Use
  Company Number: US-AMGEN-QUU364671

PATIENT
  Sex: Female

DRUGS (4)
  1. ENBREL [Suspect]
     Indication: RHEUMATOID ARTHRITIS
     Route: 058
     Dates: start: 20080101
  2. ENBREL [Suspect]
     Indication: OSTEOARTHRITIS
  3. ASPIRIN [Concomitant]
  4. UNSPECIFIED MEDICATION [Concomitant]

REACTIONS (6)
  - ANAEMIA [None]
  - FEELING ABNORMAL [None]
  - GASTRIC ULCER HAEMORRHAGE [None]
  - PAIN [None]
  - PAIN IN EXTREMITY [None]
  - VOMITING [None]
